FAERS Safety Report 5143628-6 (Version None)
Quarter: 2006Q4

REPORT INFORMATION
  Report Type: 
  Country: None (occurrence: None)
  Receive Date: 20061103
  Receipt Date: 20061026
  Transmission Date: 20070319
  Serious: Yes (Hospitalization)
  Sender: FDA-Public Use
  Company Number: US-JNJFOC-20060902835

PATIENT
  Sex: Male

DRUGS (3)
  1. TOPAMAX [Suspect]
     Indication: CONVULSION
     Route: 048
  2. CRACK COCAINE [Suspect]
     Indication: DRUG USE FOR UNKNOWN INDICATION
  3. SEROQUEL [Concomitant]

REACTIONS (1)
  - CEREBROVASCULAR ACCIDENT [None]
